FAERS Safety Report 24971226 (Version 1)
Quarter: 2025Q1

REPORT INFORMATION
  Report Type: Spontaneous
  Country: ZA (occurrence: ZA)
  Receive Date: 20250214
  Receipt Date: 20250214
  Transmission Date: 20250409
  Serious: Yes (Death)
  Sender: BAYER HEALTHCARE PHARMACEUTICALS INC.
  Company Number: ZA-BAYER-2025A020697

PATIENT
  Age: 52 Year
  Sex: Female

DRUGS (30)
  1. ANGELIQ [Suspect]
     Active Substance: DROSPIRENONE\ESTRADIOL
     Dosage: 1 DF, QD
     Route: 048
  2. DULOXETINE HYDROCHLORIDE [Concomitant]
     Active Substance: DULOXETINE HYDROCHLORIDE
     Dosage: 60 MG, QD
     Route: 048
  3. DULOXETINE HYDROCHLORIDE [Concomitant]
     Active Substance: DULOXETINE HYDROCHLORIDE
     Dosage: 30 MG, QD
     Route: 048
  4. DORMONOCT [Concomitant]
     Active Substance: LOPRAZOLAM
     Dosage: 2 MG, QD (AT NIGHT)
     Route: 048
  5. EMLA [Concomitant]
     Active Substance: LIDOCAINE\PRILOCAINE
     Route: 061
  6. CYCLIZINE [Concomitant]
     Active Substance: CYCLIZINE
     Route: 048
  7. ANTABUSE [Concomitant]
     Active Substance: DISULFIRAM
     Dosage: 400 MG, QD (HALF A TABLET ONCE DAILY)
     Route: 048
  8. ALPRAZOLAM [Concomitant]
     Active Substance: ALPRAZOLAM
     Dosage: 1 MG, BID
     Route: 048
  9. ALPRAZOLAM [Concomitant]
     Active Substance: ALPRAZOLAM
     Dosage: 0.25 MG, BID
  10. MAGNESIUM CHLORIDE [Concomitant]
     Active Substance: MAGNESIUM CHLORIDE
     Dosage: ONE TABLET BID
  11. PASRIN [Concomitant]
     Dosage: 10 MG, QD (ONCE IN THE MORNING )
     Route: 048
  12. AMITRIPTYLINE [Concomitant]
     Active Substance: AMITRIPTYLINE
     Dosage: 10 MG, QD (ONCE IN THE EVENING)
     Route: 048
  13. NEUROBION [Concomitant]
     Active Substance: CYANOCOBALAMIN\PYRIDOXINE\THIAMINE
     Dosage: UNK UNK, QD
     Route: 048
  14. HYDROXYZINE HYDROCHLORIDE [Concomitant]
     Active Substance: HYDROXYZINE HYDROCHLORIDE
     Dosage: 25 MG, QD (ONCE IN THE EVENING)
     Route: 048
  15. NORFLEX [Concomitant]
     Active Substance: ORPHENADRINE CITRATE
     Dosage: 100 MG, TID
     Route: 048
  16. NORFLEX [Concomitant]
     Active Substance: ORPHENADRINE CITRATE
     Dosage: 100 MG, BID, TWELVE HOURLY
     Route: 048
  17. ACETAMINOPHEN [Concomitant]
     Active Substance: ACETAMINOPHEN
     Route: 048
  18. GABAPENTIN [Concomitant]
     Active Substance: GABAPENTIN
     Indication: Epilepsy
     Route: 048
  19. PHENERGAN [Concomitant]
     Active Substance: PROMETHAZINE HYDROCHLORIDE
     Dosage: 25 MG, QD (AT NIGHT)
     Route: 048
  20. HALCION [Concomitant]
     Active Substance: TRIAZOLAM
     Indication: Sleep disorder
     Dosage: 0.25 MG, QD (AT NIGHT)
     Route: 048
  21. LORNOXICAM [Concomitant]
     Active Substance: LORNOXICAM
     Dosage: 8 MG, BID
     Route: 048
  22. Somnil [Concomitant]
     Route: 048
  23. FLUPENTIXOL [Concomitant]
     Active Substance: FLUPENTIXOL
     Dosage: 1 MG, QD
     Route: 048
  24. PREGABALIN [Concomitant]
     Active Substance: PREGABALIN
     Dosage: 25 MG, QD  (AT NIGHT)
     Route: 048
  25. QUETIAPINE [Concomitant]
     Active Substance: QUETIAPINE
     Dosage: 25 MG, BID (AT NIGHT)
     Route: 048
  26. GEN PAYNE [Concomitant]
     Route: 048
  27. LOPERAMIDE [Concomitant]
     Active Substance: LOPERAMIDE
     Route: 048
  28. Cifran [Concomitant]
     Dosage: 500 MG, BID
     Route: 048
  29. INTEFLORA [Concomitant]
     Dosage: 250 MG, BID
     Route: 048
  30. ILIADIN [Concomitant]
     Dosage: 0.5 MG, TID (TWO SPRAYS INTO BOTH NOSTRILS)
     Route: 045

REACTIONS (1)
  - Accidental death [Fatal]

NARRATIVE: CASE EVENT DATE: 20250204
